FAERS Safety Report 12818156 (Version 2)
Quarter: 2016Q4

REPORT INFORMATION
  Report Type: Spontaneous
  Country: SE (occurrence: SE)
  Receive Date: 20161005
  Receipt Date: 20161019
  Transmission Date: 20170207
  Serious: Yes (Other)
  Sender: FDA-Public Use
  Company Number: SE-ALLERGAN-1670895US

PATIENT
  Sex: Female

DRUGS (1)
  1. CITALOPRAM HYDROBROMIDE - BP [Suspect]
     Active Substance: CITALOPRAM HYDROBROMIDE
     Indication: DEPRESSION
     Dosage: UNK

REACTIONS (6)
  - Decreased interest [Unknown]
  - Irritability [Unknown]
  - Suicidal behaviour [Unknown]
  - Depressed mood [Unknown]
  - Intentional self-injury [Unknown]
  - Weight fluctuation [Unknown]
